FAERS Safety Report 4303168-0 (Version None)
Quarter: 2004Q1

REPORT INFORMATION
  Report Type: 
  Country: None (occurrence: None)
  Receive Date: 20040224
  Receipt Date: 20040218
  Transmission Date: 20041129
  Serious: Yes (Other)
  Sender: FDA-Public Use
  Company Number: PHEH2004US02111

PATIENT
  Sex: Male

DRUGS (1)
  1. FORADIL [Suspect]
     Indication: COUGH

REACTIONS (1)
  - DIABETES MELLITUS INSULIN-DEPENDENT [None]
